FAERS Safety Report 20845680 (Version 3)
Quarter: 2022Q2

REPORT INFORMATION
  Report Type: Spontaneous
  Country: US (occurrence: US)
  Receive Date: 20220518
  Receipt Date: 20220621
  Transmission Date: 20220721
  Serious: No
  Sender: FDA-Public Use
  Company Number: US-PFIZER INC-2020179129

PATIENT
  Age: 35 Year
  Sex: Female

DRUGS (2)
  1. XELJANZ XR [Suspect]
     Active Substance: TOFACITINIB CITRATE
     Indication: Alopecia
     Dosage: 11 MG, DAILY
     Route: 048
     Dates: start: 2021
  2. XELJANZ XR [Suspect]
     Active Substance: TOFACITINIB CITRATE
     Indication: Alopecia areata

REACTIONS (5)
  - Off label use [Unknown]
  - Drug effective for unapproved indication [Unknown]
  - Stress [Unknown]
  - Condition aggravated [Unknown]
  - Joint injury [Unknown]

NARRATIVE: CASE EVENT DATE: 20210101
